FAERS Safety Report 13400038 (Version 2)
Quarter: 2017Q2

REPORT INFORMATION
  Report Type: Spontaneous
  Country: DE (occurrence: DE)
  Receive Date: 20170404
  Receipt Date: 20170508
  Transmission Date: 20170830
  Serious: Yes (Other)
  Sender: FDA-Public Use
  Company Number: DE-SUN PHARMACEUTICAL INDUSTRIES LTD-2017RR-137443

PATIENT
  Age: 62 Year
  Sex: Male
  Weight: 115 kg

DRUGS (9)
  1. TAMSULOSIN BASICS 0,4 MG HARTKAPSEL, RETARDIERT [Suspect]
     Active Substance: TAMSULOSIN
     Indication: BENIGN PROSTATIC HYPERPLASIA
     Dosage: 0-0-1, DOSE CHANGED TO 1 DF EVERY OTHER DAY
     Route: 048
     Dates: start: 201610, end: 201701
  2. FINURAL 5 MG [Suspect]
     Active Substance: FINASTERIDE
     Indication: BENIGN PROSTATIC HYPERPLASIA
     Dosage: 1 DF, QD
     Route: 048
     Dates: start: 201612, end: 201701
  3. LEVETIRACETAM. [Suspect]
     Active Substance: LEVETIRACETAM
     Indication: EPILEPSY
     Dosage: 1-0-1
     Route: 048
     Dates: start: 201602, end: 201701
  4. ASS AL [Suspect]
     Active Substance: ASPIRIN
     Indication: PROPHYLAXIS
     Dosage: 1-0-0
     Route: 048
     Dates: start: 201608, end: 201701
  5. TRIVERAM [Suspect]
     Active Substance: AMLODIPINE\ATORVASTATIN\PERINDOPRIL
     Indication: HYPERCHOLESTEROLAEMIA
     Dosage: 1-0-0
     Route: 048
     Dates: start: 201608, end: 201701
  6. TRIVERAM [Suspect]
     Active Substance: AMLODIPINE\ATORVASTATIN\PERINDOPRIL
     Indication: HYPERTENSION
  7. VELMETIA [Suspect]
     Active Substance: METFORMIN\SITAGLIPTIN
     Indication: TYPE 2 DIABETES MELLITUS
     Dosage: 1-0-1
     Route: 048
     Dates: start: 201404, end: 201701
  8. POLLSTIMOL [Suspect]
     Active Substance: HERBALS
     Indication: BENIGN PROSTATIC HYPERPLASIA
     Dosage: 1-0-1
     Route: 048
     Dates: start: 201610, end: 201701
  9. TORASEMID AL [Suspect]
     Active Substance: TORSEMIDE
     Indication: PRODUCT USED FOR UNKNOWN INDICATION
     Dosage: 1/2-0-0
     Route: 048
     Dates: start: 201510, end: 201701

REACTIONS (4)
  - Abdominal pain [Recovered/Resolved]
  - Tachycardia [Recovered/Resolved]
  - Epistaxis [Recovered/Resolved]
  - Vision blurred [Recovered/Resolved]

NARRATIVE: CASE EVENT DATE: 20170102
